FAERS Safety Report 9254998 (Version 1)
Quarter: 2013Q2

REPORT INFORMATION
  Report Type: Spontaneous
  Country: AU (occurrence: AU)
  Receive Date: 20130425
  Receipt Date: 20130425
  Transmission Date: 20140414
  Serious: Yes (Life-Threatening, Hospitalization, Disabling, Other)
  Sender: FDA-Public Use
  Company Number: AU-PFIZER INC-2013125426

PATIENT
  Age: 58 Year
  Sex: Male

DRUGS (1)
  1. LIPITOR [Suspect]
     Dosage: UNK
     Dates: start: 2006

REACTIONS (5)
  - Rhabdomyolysis [Unknown]
  - Renal failure acute [Unknown]
  - Sepsis [Unknown]
  - Disseminated intravascular coagulation [Unknown]
  - Hemiplegia [Not Recovered/Not Resolved]
